FAERS Safety Report 14055242 (Version 2)
Quarter: 2017Q4

REPORT INFORMATION
  Report Type: Spontaneous
  Country: US (occurrence: US)
  Receive Date: 20171006
  Receipt Date: 20171128
  Transmission Date: 20180321
  Serious: No
  Sender: FDA-Public Use
  Company Number: US-JNJFOC-20170810174

PATIENT
  Age: 61 Year
  Sex: Female
  Weight: 58.97 kg

DRUGS (3)
  1. MENS ROGAINE EXTRA STRENGTH [Suspect]
     Active Substance: MINOXIDIL
     Route: 061
  2. MENS ROGAINE EXTRA STRENGTH [Suspect]
     Active Substance: MINOXIDIL
     Indication: ALOPECIA
     Dosage: HALF CAPFUL AMOUNT
     Route: 061
     Dates: start: 201705, end: 20170808
  3. BABY ASPIRIN [Concomitant]
     Active Substance: ASPIRIN
     Indication: PRODUCT USED FOR UNKNOWN INDICATION
     Dosage: AT NIGHT
     Route: 065

REACTIONS (8)
  - Erythema [Recovering/Resolving]
  - Skin irritation [Recovering/Resolving]
  - Pruritus [Recovering/Resolving]
  - Intentional product misuse [Unknown]
  - Skin exfoliation [Recovering/Resolving]
  - Hair texture abnormal [Recovering/Resolving]
  - Product use issue [Unknown]
  - Skin burning sensation [Recovering/Resolving]

NARRATIVE: CASE EVENT DATE: 201705
